FAERS Safety Report 10784759 (Version 1)
Quarter: 2015Q1

REPORT INFORMATION
  Report Type: Spontaneous
  Country: US (occurrence: US)
  Receive Date: 20150211
  Receipt Date: 20150211
  Transmission Date: 20150721
  Serious: No
  Sender: FDA-Public Use
  Company Number: US-GLAXOSMITHKLINE-A1089224A

PATIENT

DRUGS (18)
  1. LAMICTAL [Suspect]
     Active Substance: LAMOTRIGINE
     Indication: SEIZURE
     Dosage: VARIABLE DOSE
     Route: 048
     Dates: start: 201406
  2. VIVELLE [Concomitant]
     Active Substance: ESTRADIOL
  3. BIOTIN [Concomitant]
     Active Substance: BIOTIN
  4. VITAMIN D3 [Concomitant]
     Active Substance: CHOLECALCIFEROL
  5. TEGRETOL [Concomitant]
     Active Substance: CARBAMAZEPINE
  6. CHONDROITIN SULFATE (BOVINE)\GLUCOSAMINE SULFATE [Concomitant]
     Active Substance: CHONDROITIN SULFATE (BOVINE)\GLUCOSAMINE SULFATE
  7. FISH OIL [Concomitant]
     Active Substance: FISH OIL
  8. CENTRUM SILVER [Concomitant]
     Active Substance: VITAMINS
  9. TOPAMAX [Concomitant]
     Active Substance: TOPIRAMATE
  10. SIMVASTATIN TABLETS [Suspect]
     Active Substance: SIMVASTATIN
     Indication: BLOOD CHOLESTEROL INCREASED
     Route: 048
     Dates: start: 20140225, end: 20140523
  11. AMINO ACID SUPPLEMENT [Concomitant]
  12. RESTASIS [Concomitant]
     Active Substance: CYCLOSPORINE
  13. CRANBERRY. [Concomitant]
     Active Substance: CRANBERRY
  14. MELATONIN [Concomitant]
     Active Substance: MELATONIN
  15. LAMOTRIGINE TABLET [Suspect]
     Active Substance: LAMOTRIGINE
     Indication: SEIZURE
     Route: 048
     Dates: start: 201404, end: 201405
  16. CRESTOR [Concomitant]
     Active Substance: ROSUVASTATIN CALCIUM
  17. FLAXSEED [Concomitant]
     Active Substance: FLAX SEED
  18. PROBIOTIC [Concomitant]
     Active Substance: PROBIOTICS NOS

REACTIONS (2)
  - Anticonvulsant drug level above therapeutic [Unknown]
  - Alopecia [Not Recovered/Not Resolved]

NARRATIVE: CASE EVENT DATE: 201405
